FAERS Safety Report 8177309-1 (Version None)
Quarter: 2012Q1

REPORT INFORMATION
  Report Type: 
  Country: None (occurrence: None)
  Receive Date: 20120301
  Receipt Date: 20120227
  Transmission Date: 20120608
  Serious: Yes (Other)
  Sender: FDA-Public Use
  Company Number: US-PFIZER INC-2012051671

PATIENT
  Sex: Female
  Weight: 54.422 kg

DRUGS (4)
  1. DETROL LA [Suspect]
     Indication: POLLAKIURIA
     Dosage: 4 MG, 1X/DAY
     Route: 048
  2. PREMARIN [Suspect]
     Indication: POSTOPERATIVE CARE
     Dosage: 0.625 MG, 1X/DAY
     Route: 048
  3. NEURONTIN [Suspect]
     Indication: CONVULSION
     Dosage: 600 MG, 5X/DAY
     Route: 048
     Dates: start: 20030101
  4. NEURONTIN [Suspect]
     Dosage: 600 MG, UNK
     Route: 048

REACTIONS (3)
  - CEREBROVASCULAR ACCIDENT [None]
  - BLOOD CHOLESTEROL INCREASED [None]
  - BLOOD CHOLESTEROL ABNORMAL [None]
